FAERS Safety Report 6177484-4 (Version None)
Quarter: 2009Q2

REPORT INFORMATION
  Report Type: 
  Country: None (occurrence: None)
  Receive Date: 20090504
  Receipt Date: 20090428
  Transmission Date: 20091009
  Serious: Yes (Life-Threatening, Other)
  Sender: FDA-Public Use
  Company Number: PHEH2009US02371

PATIENT
  Sex: Female

DRUGS (4)
  1. RECLAST [Suspect]
     Indication: OSTEOPOROSIS
     Dosage: 5 MG, ONCE/SINGLE
     Route: 042
     Dates: start: 20081216
  2. LIBRAX [Concomitant]
  3. TYLENOL [Concomitant]
  4. PENICILLIN ^GRUNENTHAL^ [Concomitant]

REACTIONS (27)
  - ABASIA [None]
  - ABDOMINAL PAIN UPPER [None]
  - APPARENT DEATH [None]
  - ASTHENIA [None]
  - BEDRIDDEN [None]
  - BLOOD POTASSIUM DECREASED [None]
  - CHEST PAIN [None]
  - COUGH [None]
  - DIARRHOEA [None]
  - DIZZINESS [None]
  - ERYTHEMA [None]
  - FATIGUE [None]
  - HEADACHE [None]
  - HYPOAESTHESIA [None]
  - INFLUENZA LIKE ILLNESS [None]
  - LYMPH NODE PAIN [None]
  - MALAISE [None]
  - MUSCULAR WEAKNESS [None]
  - MYALGIA [None]
  - NAUSEA [None]
  - PAIN [None]
  - PAIN IN JAW [None]
  - PALPITATIONS [None]
  - PYREXIA [None]
  - THROAT IRRITATION [None]
  - VISUAL IMPAIRMENT [None]
  - VOMITING [None]
